FAERS Safety Report 6552543-2 (Version None)
Quarter: 2010Q1

REPORT INFORMATION
  Report Type: 
  Country: None (occurrence: None)
  Receive Date: 20100121
  Receipt Date: 20100106
  Transmission Date: 20100710
  Serious: Yes (Other)
  Sender: FDA-Public Use
  Company Number: AVE_01413_2010

PATIENT
  Age: 70 Year
  Sex: Female
  Weight: 56.6996 kg

DRUGS (3)
  1. CLONIDINE [Suspect]
     Indication: BLOOD PRESSURE MANAGEMENT
     Dosage: 0.2 MG QD VIA 1/WEEKLY PATCH TOPICAL
     Route: 061
     Dates: start: 20091201
  2. VYTORIN HCT (VYTORIN HCT) [Concomitant]
  3. NADOLOL [Concomitant]

REACTIONS (3)
  - DRUG INEFFECTIVE [None]
  - HYPERTENSIVE CRISIS [None]
  - PRODUCT ADHESION ISSUE [None]
